FAERS Safety Report 5975100-5 (Version None)
Quarter: 2008Q4

REPORT INFORMATION
  Report Type: 
  Country: None (occurrence: None)
  Receive Date: 20081128
  Receipt Date: 20081113
  Transmission Date: 20090506
  Serious: Yes (Other)
  Sender: FDA-Public Use
  Company Number: DSA_27649_2006

PATIENT
  Sex: Female
  Weight: 72.5755 kg

DRUGS (6)
  1. ATIVAN [Suspect]
     Indication: ANXIETY
     Dosage: (DF ORAL)
     Route: 048
     Dates: end: 20060101
  2. ATIVAN [Suspect]
     Indication: CONVULSION
     Dosage: (DF ORAL)
     Route: 048
     Dates: end: 20060101
  3. ATIVAN [Suspect]
     Indication: MUSCLE RELAXANT THERAPY
     Dosage: (DF ORAL)
     Route: 048
     Dates: end: 20060101
  4. ATIVAN [Suspect]
     Indication: PANIC DISORDER
     Dosage: (DF ORAL)
     Route: 048
     Dates: end: 20060101
  5. ATIVAN [Suspect]
     Indication: ANXIETY
     Dosage: (DF ORAL)
     Route: 048
     Dates: start: 19860101, end: 20060101
  6. KLONOPIN [Concomitant]

REACTIONS (24)
  - ANXIETY [None]
  - BLOOD SODIUM DECREASED [None]
  - BREAST PAIN [None]
  - CONVULSION [None]
  - DEAFNESS UNILATERAL [None]
  - DEPRESSION [None]
  - DIVERTICULITIS [None]
  - DRUG INEFFECTIVE [None]
  - DYSPEPSIA [None]
  - ELECTROENCEPHALOGRAM ABNORMAL [None]
  - FATIGUE [None]
  - FLUID RETENTION [None]
  - GAIT DISTURBANCE [None]
  - LOCAL SWELLING [None]
  - MALAISE [None]
  - MUSCLE RIGIDITY [None]
  - OEDEMA [None]
  - PAIN IN EXTREMITY [None]
  - PANIC ATTACK [None]
  - PRODUCT QUALITY ISSUE [None]
  - SOMNOLENCE [None]
  - SWELLING [None]
  - TINNITUS [None]
  - URINARY TRACT INFLAMMATION [None]
